FAERS Safety Report 22600137 (Version 2)
Quarter: 2023Q4

REPORT INFORMATION
  Report Type: Spontaneous
  Country: JP (occurrence: JP)
  Receive Date: 20230614
  Receipt Date: 20231023
  Transmission Date: 20240109
  Serious: Yes (Other)
  Sender: FDA-Public Use
  Company Number: JP-GLAXOSMITHKLINE-JP2023JPN080507

PATIENT

DRUGS (13)
  1. DAPRODUSTAT [Suspect]
     Active Substance: DAPRODUSTAT
     Indication: Nephrogenic anaemia
     Dosage: 4 MG
     Route: 048
     Dates: start: 20220804, end: 20221003
  2. DAPRODUSTAT [Suspect]
     Active Substance: DAPRODUSTAT
     Dosage: UNK
     Dates: start: 20221128
  3. ALLOPURINOL [Concomitant]
     Active Substance: ALLOPURINOL
     Indication: Hyperuricaemia
     Dosage: 100 MG, 1D
     Route: 048
  4. LANTHANUM CARBONATE [Concomitant]
     Active Substance: LANTHANUM CARBONATE
     Indication: Chronic kidney disease-mineral and bone disorder
     Dosage: 250 UNK, TID
     Route: 048
  5. PRECIPITATED CALCIUM CARBONATE TABLETS [Concomitant]
     Indication: Chronic kidney disease-mineral and bone disorder
     Dosage: 500, UNK, TID
     Route: 048
  6. NOBELZIN TABLETS [Concomitant]
     Indication: Zinc deficiency
     Dosage: 50, UNK, 1D
     Route: 048
  7. ALFAROL [Concomitant]
     Active Substance: ALFACALCIDOL
     Indication: Chronic kidney disease-mineral and bone disorder
     Dosage: 0.5, UNK, 1D
     Route: 048
  8. DOXAZOSIN MESILATE TABLET [Concomitant]
     Indication: Hypertension
     Dosage: 1, UNK, 1D
     Route: 048
  9. ALDOMET TABLETS [Concomitant]
     Indication: Hypertension
     Dosage: 125, UNK, 1D
     Route: 048
  10. AZILVA TABLETS [Concomitant]
     Indication: Hypertension
     Dosage: 20, UNK, BID
     Route: 048
  11. NIFEDIPINE [Concomitant]
     Active Substance: NIFEDIPINE
     Indication: Hypertension
     Dosage: 40, UNK, 1D
     Route: 048
  12. BERIZYM (JAPAN) [Concomitant]
     Indication: Dyspepsia
     Dosage: 3 G, TID
     Route: 048
  13. OMEGA-3-ACID ETHYL ESTERS [Concomitant]
     Active Substance: OMEGA-3-ACID ETHYL ESTERS
     Indication: Lipids abnormal
     Dosage: 2 G, 1D
     Route: 048

REACTIONS (3)
  - Haemoglobin decreased [Recovered/Resolved]
  - Nephrogenic anaemia [Unknown]
  - Disease progression [Unknown]

NARRATIVE: CASE EVENT DATE: 20220816
